FAERS Safety Report 20859136 (Version 1)
Quarter: 2022Q2

REPORT INFORMATION
  Report Type: Report from Study
  Country: US (occurrence: US)
  Receive Date: 20220523
  Receipt Date: 20220523
  Transmission Date: 20220721
  Serious: Yes (Hospitalization, Other)
  Sender: FDA-Public Use
  Company Number: US-GILEAD-2022-0581639

PATIENT
  Sex: Female

DRUGS (20)
  1. AZTREONAM LYSINE [Suspect]
     Active Substance: AZTREONAM LYSINE
     Indication: Cystic fibrosis
     Dosage: 1 ML, TID, 28/28
     Route: 055
  2. VITAMIN D3 [Concomitant]
     Active Substance: CHOLECALCIFEROL
  3. SODIUM CHLORIDE [Concomitant]
     Active Substance: SODIUM CHLORIDE
  4. VITAMINS\ZINC [Concomitant]
     Active Substance: VITAMINS\ZINC
  5. CALCIUM CITRATE [Concomitant]
     Active Substance: CALCIUM CITRATE
  6. IBUPROFEN [Concomitant]
     Active Substance: IBUPROFEN
  7. AZITHROMYCIN [Concomitant]
     Active Substance: AZITHROMYCIN
  8. CREON [Concomitant]
     Active Substance: PANCRELIPASE AMYLASE\PANCRELIPASE LIPASE\PANCRELIPASE PROTEASE
  9. FLONASE ALLERGY RELIEF [Concomitant]
     Active Substance: FLUTICASONE PROPIONATE
  10. LANSOPRAZOLE [Concomitant]
     Active Substance: LANSOPRAZOLE
  11. MEPHYTON [Concomitant]
     Active Substance: PHYTONADIONE
  12. SPRINTEC [Concomitant]
     Active Substance: ETHINYL ESTRADIOL\NORGESTIMATE
  13. ALBUTEROL SULFATE [Concomitant]
     Active Substance: ALBUTEROL SULFATE
  14. ADVAIR UNSPEC [Concomitant]
  15. XOPENEX [Concomitant]
     Active Substance: LEVALBUTEROL HYDROCHLORIDE
  16. LISINOPRIL [Concomitant]
     Active Substance: LISINOPRIL
  17. AZELASTINE HYDROCHLORIDE [Concomitant]
     Active Substance: AZELASTINE HYDROCHLORIDE
  18. CETIRIZINE HYDROCHLORIDE [Concomitant]
     Active Substance: CETIRIZINE HYDROCHLORIDE
  19. DICLOFENAC [Concomitant]
     Active Substance: DICLOFENAC
  20. TRIKAFTA [Concomitant]
     Active Substance: ELEXACAFTOR\IVACAFTOR\TEZACAFTOR

REACTIONS (2)
  - Cystic fibrosis [Unknown]
  - Pneumonia [Unknown]
